FAERS Safety Report 9952347 (Version 2)
Quarter: 2014Q1

REPORT INFORMATION
  Report Type: Report from Study
  Country: US (occurrence: US)
  Receive Date: 20140304
  Receipt Date: 20140304
  Transmission Date: 20141002
  Serious: No
  Sender: FDA-Public Use
  Company Number: US-ABBVIE-13P-163-1050453-00

PATIENT
  Age: 66 Year
  Sex: Male
  Weight: 97.61 kg

DRUGS (8)
  1. HUMIRA [Suspect]
     Indication: COLITIS ULCERATIVE
     Dosage: LOADING DOSE
     Route: 058
     Dates: start: 20130208, end: 20130208
  2. HUMIRA [Suspect]
     Dates: start: 20130222, end: 20130222
  3. HUMIRA [Suspect]
  4. MESALAMINE [Concomitant]
     Indication: PRODUCT USED FOR UNKNOWN INDICATION
     Dates: end: 20130404
  5. ALPRAZOLAM [Concomitant]
     Indication: ANXIETY
  6. SIMVASTATIN [Concomitant]
     Indication: BLOOD CHOLESTEROL INCREASED
  7. LISINOPRIL [Concomitant]
     Indication: BLOOD PRESSURE
  8. METOPROLOL [Concomitant]
     Indication: HYPERTENSION

REACTIONS (5)
  - Frequent bowel movements [Not Recovered/Not Resolved]
  - Drug ineffective [Not Recovered/Not Resolved]
  - Colitis ulcerative [Not Recovered/Not Resolved]
  - Diarrhoea [Not Recovered/Not Resolved]
  - Inflammation [Not Recovered/Not Resolved]
